FAERS Safety Report 4881721-3 (Version None)
Quarter: 2006Q1

REPORT INFORMATION
  Report Type: 
  Country: None (occurrence: None)
  Receive Date: 20060116
  Receipt Date: 20040322
  Transmission Date: 20060701
  Serious: Yes (Hospitalization)
  Sender: FDA-Public Use
  Company Number: JP-ROCHE-362541

PATIENT
  Age: 32 Year
  Sex: Female

DRUGS (13)
  1. MYCOPHENOLATE MOFETIL [Suspect]
     Route: 048
     Dates: start: 20021127, end: 20021203
  2. MYCOPHENOLATE MOFETIL [Suspect]
     Route: 048
     Dates: start: 20021204, end: 20030220
  3. MYCOPHENOLATE MOFETIL [Suspect]
     Route: 048
     Dates: start: 20030221, end: 20031030
  4. MYCOPHENOLATE MOFETIL [Suspect]
     Route: 048
     Dates: start: 20021031
  5. MEDROL [Suspect]
     Route: 048
     Dates: start: 20021127
  6. CYCLOSPORINE [Suspect]
     Route: 048
     Dates: start: 20021127, end: 20030919
  7. BASILIXIMAB [Suspect]
     Dosage: TWO DOSES ONLY
     Route: 042
     Dates: start: 20021128, end: 20021202
  8. METHYLPREDNISOLONE [Suspect]
     Route: 041
     Dates: start: 20021128, end: 20031019
  9. SANDIMMUNE [Suspect]
     Route: 041
     Dates: start: 20021128, end: 20021201
  10. GUSPERIMUS HYDROCHLORIDE [Suspect]
     Route: 041
     Dates: start: 20031017, end: 20031022
  11. TACROLIMUS HYDRATE [Suspect]
     Route: 048
     Dates: start: 20031020
  12. BIOFERMIN [Concomitant]
     Route: 048
     Dates: start: 20021204, end: 20030411
  13. FUNGIZONE [Concomitant]
     Dates: start: 20030221, end: 20030314

REACTIONS (4)
  - ACNE [None]
  - DIARRHOEA [None]
  - OROPHARYNGITIS FUNGAL [None]
  - PSEUDO LYMPHOMA [None]
